FAERS Safety Report 5990691-6 (Version None)
Quarter: 2008Q4

REPORT INFORMATION
  Report Type: 
  Country: None (occurrence: None)
  Receive Date: 20081211
  Receipt Date: 20081202
  Transmission Date: 20090506
  Serious: Yes (Other)
  Sender: FDA-Public Use
  Company Number: PHHY2008CA28550

PATIENT
  Sex: Female

DRUGS (2)
  1. TEGRETOL [Suspect]
     Dosage: 200 MG IN MORNING, 400 MG IN EVENING
     Route: 048
  2. TEGRETOL [Suspect]

REACTIONS (2)
  - DYSPHAGIA [None]
  - GASTROINTESTINAL SURGERY [None]
